FAERS Safety Report 6112221-0 (Version None)
Quarter: 2009Q1

REPORT INFORMATION
  Report Type: 
  Country: None (occurrence: None)
  Receive Date: 20090310
  Receipt Date: 20090304
  Transmission Date: 20090719
  Serious: Yes (Life-Threatening, Hospitalization)
  Sender: FDA-Public Use
  Company Number: 2009EU000928

PATIENT
  Age: 66 Year
  Sex: Male
  Weight: 100 kg

DRUGS (1)
  1. PROGRAF [Suspect]
     Indication: RENAL TRANSPLANT
     Dosage: 3.5 MG, UID/QD, ORAL
     Route: 048
     Dates: end: 20090125

REACTIONS (3)
  - DIARRHOEA [None]
  - GASTROENTERITIS SALMONELLA [None]
  - SEPTIC SHOCK [None]
